FAERS Safety Report 24910932 (Version 1)
Quarter: 2025Q1

REPORT INFORMATION
  Report Type: Spontaneous
  Country: CN (occurrence: CN)
  Receive Date: 20250131
  Receipt Date: 20250131
  Transmission Date: 20250409
  Serious: Yes (Other)
  Sender: GE HEALTHCARE
  Company Number: CN-GE HEALTHCARE-2025CSU000961

PATIENT
  Age: 75 Year
  Sex: Female

DRUGS (1)
  1. OMNIPAQUE [Suspect]
     Active Substance: IOHEXOL
     Indication: Computerised tomogram heart
     Route: 013
     Dates: start: 20250120, end: 20250120

REACTIONS (4)
  - Blood pressure immeasurable [Recovering/Resolving]
  - Fear of death [Recovering/Resolving]
  - Dyspnoea [Recovering/Resolving]
  - Contrast media allergy [Recovering/Resolving]

NARRATIVE: CASE EVENT DATE: 20250120
